FAERS Safety Report 7885107-9 (Version None)
Quarter: 2011Q4

REPORT INFORMATION
  Report Type: 
  Country: None (occurrence: None)
  Receive Date: 20111102
  Receipt Date: 20100628
  Transmission Date: 20120403
  Serious: No
  Sender: FDA-Public Use
  Company Number: US-BAYER-201026480NA

PATIENT
  Age: 81 Year
  Sex: Female
  Weight: 78.005 kg

DRUGS (17)
  1. MUCINEX [Concomitant]
     Dosage: UNK UNK, PRN
     Dates: end: 20100521
  2. VYTORIN [Concomitant]
     Dosage: UNK UNK, QD
  3. LASIX [Concomitant]
     Dosage: 80 MG, QD
  4. GLIPIZIDE [Concomitant]
     Dosage: 2.5 MG, BID
  5. CENTRUM SILVER [Concomitant]
     Dosage: UNK UNK, QD
  6. AVELOX [Suspect]
     Indication: NASOPHARYNGITIS
     Dosage: UNK
     Dates: start: 20100501
  7. ASPIRIN [Concomitant]
     Dosage: 81 MG, QD
     Route: 048
  8. LEVOTHROID [Concomitant]
     Dosage: 75 MCG/24HR, QD
  9. MINITRAN [Concomitant]
     Dosage: 0.2 MG, BID
  10. PRILOSEC [Concomitant]
     Dosage: 30 MG, BID
     Route: 048
  11. COQ10 [Concomitant]
     Dosage: 100 MG, QD
     Route: 048
  12. GUAIFENESIN [Concomitant]
     Dosage: UNK UNK, PRN
     Dates: end: 20100521
  13. CLONIDINE [Concomitant]
     Dosage: 0.75 MG, QD
  14. POTASSIUM [Concomitant]
     Dosage: 1500 MG, QD
     Dates: start: 20100521, end: 20100525
  15. NORVASC [Concomitant]
     Dosage: 5 MG, QD
     Dates: end: 20100526
  16. CRANBERRY [Concomitant]
     Dosage: UNK UNK, QD
     Route: 048
  17. COLCHICINE [Concomitant]
     Dosage: 0.6 MG, QOD

REACTIONS (2)
  - NERVOUSNESS [None]
  - FLUSHING [None]
